FAERS Safety Report 15416984 (Version 1)
Quarter: 2018Q3

REPORT INFORMATION
  Report Type: Spontaneous
  Country: FR (occurrence: FR)
  Receive Date: 20180924
  Receipt Date: 20180924
  Transmission Date: 20181010
  Serious: Yes (Hospitalization)
  Sender: FDA-Public Use
  Company Number: FR-CONCORDIA PHARMACEUTICALS INC.-E2B_00016772

PATIENT
  Age: 2 Day
  Sex: Male

DRUGS (3)
  1. ZONEGRAN [Suspect]
     Active Substance: ZONISAMIDE
     Indication: EXPOSURE DURING PREGNANCY
     Route: 064
     Dates: start: 20170903, end: 20180607
  2. LAMICTAL [Suspect]
     Active Substance: LAMOTRIGINE
     Indication: EXPOSURE DURING PREGNANCY
     Route: 064
     Dates: start: 20170903, end: 20180607
  3. KEPPRA [Suspect]
     Active Substance: LEVETIRACETAM
     Indication: EXPOSURE DURING PREGNANCY
     Route: 064
     Dates: start: 20170903, end: 20180607

REACTIONS (2)
  - Hypotonia neonatal [Not Recovered/Not Resolved]
  - Drug withdrawal syndrome neonatal [Recovered/Resolved]

NARRATIVE: CASE EVENT DATE: 20180609
